FAERS Safety Report 5752688-0 (Version None)
Quarter: 2008Q2

REPORT INFORMATION
  Report Type: 
  Country: None (occurrence: None)
  Receive Date: 20080527
  Receipt Date: 20080527
  Transmission Date: 20081010
  Serious: No
  Sender: FDA-Public Use
  Company Number: None

PATIENT
  Age: 52 Year
  Sex: Male

DRUGS (2)
  1. LOVENOX [Suspect]
     Indication: KNEE ARTHROPLASTY
     Dosage: 30 MG Q12H SQ
     Route: 058
     Dates: start: 20071204, end: 20071208
  2. LOVENOX [Suspect]
     Indication: THROMBOSIS PROPHYLAXIS
     Dosage: 30 MG Q12H SQ
     Route: 058
     Dates: start: 20071204, end: 20071208

REACTIONS (4)
  - DYSPHAGIA [None]
  - NIGHT SWEATS [None]
  - TACHYCARDIA [None]
  - THERAPEUTIC PRODUCT CONTAMINATION [None]
